FAERS Safety Report 4915871-X (Version None)
Quarter: 2006Q1

REPORT INFORMATION
  Report Type: 
  Country: None (occurrence: None)
  Receive Date: 20060214
  Receipt Date: 20060123
  Transmission Date: 20060701
  Serious: Yes (Hospitalization, Other)
  Sender: FDA-Public Use
  Company Number: US 0504115317

PATIENT
  Age: 29 Year
  Sex: Female
  Weight: 136.4 kg

DRUGS (11)
  1. ZYPREXA [Suspect]
     Indication: BIPOLAR DISORDER
     Dosage: ORAL
     Route: 048
     Dates: start: 19990101
  2. ARIPIPRAZOLE (ARIPIPRAZOLE) [Concomitant]
  3. QUETIAPINE FUMARATE [Concomitant]
  4. ZIPRASIDONE (ZIPRASIDONE) [Concomitant]
  5. BUPROPION HCL [Concomitant]
  6. FLUOXETINE (FLUOXETINE / 00724401/) [Concomitant]
  7. PIOGLITAZONE HCL [Concomitant]
  8. ORTHO-NOVUM [Concomitant]
  9. OVCON-35 [Concomitant]
  10. TRI-LEVLEN [Concomitant]
  11. BENZYLHYDROCHLOROTHIAZIDE (BENZYLHYDROCHLOROTHIAZIDE) [Concomitant]

REACTIONS (4)
  - CHOLECYSTITIS CHRONIC [None]
  - CHOLELITHIASIS [None]
  - DIABETES MELLITUS [None]
  - PANCREATITIS [None]
